FAERS Safety Report 6790869-8 (Version None)
Quarter: 2010Q2

REPORT INFORMATION
  Report Type: 
  Country: None (occurrence: None)
  Receive Date: 20100624
  Receipt Date: 20100618
  Transmission Date: 20101027
  Serious: Yes (Hospitalization)
  Sender: FDA-Public Use
  Company Number: A0866633A

PATIENT
  Age: 64 Year

DRUGS (1)
  1. AVANDIA [Suspect]
     Dates: end: 20050101

REACTIONS (3)
  - CARDIAC FAILURE CONGESTIVE [None]
  - DEPRESSION [None]
  - HYPERTENSION [None]
